FAERS Safety Report 7629995-X (Version None)
Quarter: 2011Q3

REPORT INFORMATION
  Report Type: 
  Country: None (occurrence: None)
  Receive Date: 20110715
  Receipt Date: 20110708
  Transmission Date: 20111222
  Serious: Yes (Other)
  Sender: FDA-Public Use
  Company Number: 2011SP015465

PATIENT
  Age: 43 Year
  Sex: Male
  Weight: 81 kg

DRUGS (7)
  1. PEGASYS [Concomitant]
  2. AVLOCADYL [Concomitant]
  3. INTENT TO TREAT (INTENT TO TREAT (S-P)) [Suspect]
     Indication: HEPATITIS C
  4. VIRAFERONPEG [Suspect]
     Indication: HEPATITIS C
     Dosage: 120 MCG,WQ,SC
     Route: 058
     Dates: start: 20110328, end: 20110329
  5. REBETOL [Suspect]
     Indication: HEPATITIS C
     Dosage: 1000 MG, QD, PO
     Route: 048
     Dates: start: 20110328, end: 20110404
  6. ACETAMINOPHEN [Concomitant]
  7. COPEGUS [Concomitant]

REACTIONS (6)
  - THROAT TIGHTNESS [None]
  - DYSPNOEA [None]
  - HYPERTENSION [None]
  - TACHYCARDIA [None]
  - INFLUENZA [None]
  - BODY TEMPERATURE INCREASED [None]
